FAERS Safety Report 4927726-5 (Version None)
Quarter: 2006Q1

REPORT INFORMATION
  Report Type: 
  Country: None (occurrence: None)
  Receive Date: 20060228
  Receipt Date: 20051025
  Transmission Date: 20060701
  Serious: Yes (Hospitalization, Other)
  Sender: FDA-Public Use
  Company Number: US-MERCK-0510USA09011

PATIENT
  Age: 57 Year
  Sex: Male
  Weight: 84 kg

DRUGS (18)
  1. VIOXX [Suspect]
     Indication: BACK PAIN
     Route: 048
     Dates: start: 20010101, end: 20031201
  2. LIPITOR [Concomitant]
     Route: 065
     Dates: start: 20010101
  3. ZYRTEC [Concomitant]
     Route: 065
     Dates: start: 20021129, end: 20030115
  4. NASACORT [Concomitant]
     Route: 065
     Dates: start: 20021129
  5. ECOTRIN [Concomitant]
     Route: 048
  6. PREVACID [Concomitant]
     Route: 048
  7. PLAVIX [Concomitant]
     Route: 048
  8. ALLEGRA [Concomitant]
     Route: 065
  9. RHINOCORT [Concomitant]
     Route: 065
  10. SINGULAIR [Concomitant]
     Route: 048
     Dates: start: 20030115
  11. ASTELIN [Concomitant]
     Route: 065
     Dates: start: 20030515
  12. CLARITIN [Concomitant]
     Route: 065
  13. PROTONIX [Concomitant]
     Route: 065
     Dates: start: 20031029
  14. PROPECIA [Concomitant]
     Route: 048
  15. LEVITRA [Concomitant]
     Route: 065
  16. TOPROL-XL [Concomitant]
     Route: 065
     Dates: start: 20021201, end: 20040901
  17. TOPROL-XL [Concomitant]
     Route: 065
     Dates: start: 20040922
  18. VIAGRA [Concomitant]
     Route: 065

REACTIONS (16)
  - ALOPECIA [None]
  - ANGINA UNSTABLE [None]
  - CHEST PAIN [None]
  - CORONARY ARTERY RESTENOSIS [None]
  - DIZZINESS [None]
  - DRUG WITHDRAWAL SYNDROME [None]
  - ERECTILE DYSFUNCTION [None]
  - FATIGUE [None]
  - GASTROOESOPHAGEAL REFLUX DISEASE [None]
  - METATARSALGIA [None]
  - MYOCARDIAL INFARCTION [None]
  - OSTEOARTHRITIS [None]
  - PALPITATIONS [None]
  - RHINITIS ALLERGIC [None]
  - SCOTOMA [None]
  - SUPRAVENTRICULAR TACHYCARDIA [None]
